FAERS Safety Report 25547455 (Version 1)
Quarter: 2025Q3

REPORT INFORMATION
  Report Type: Spontaneous
  Country: SG (occurrence: SG)
  Receive Date: 20250714
  Receipt Date: 20250714
  Transmission Date: 20251021
  Serious: Yes (Hospitalization)
  Sender: NOSTRUM PHARMACEUTICALS LLC
  Company Number: SG-NP-2025-102182

PATIENT
  Age: 71 Year
  Sex: Female

DRUGS (1)
  1. THEOPHYLLINE [Suspect]
     Active Substance: THEOPHYLLINE
     Route: 048

REACTIONS (2)
  - Accidental overdose [Recovered/Resolved]
  - Supraventricular tachycardia [Recovered/Resolved]
